FAERS Safety Report 5714642-4 (Version None)
Quarter: 2008Q2

REPORT INFORMATION
  Report Type: 
  Country: None (occurrence: None)
  Receive Date: 20080423
  Receipt Date: 20080418
  Transmission Date: 20081010
  Serious: Yes (Other)
  Sender: FDA-Public Use
  Company Number: B0517784A

PATIENT
  Age: 87 Year
  Sex: Female
  Weight: 70 kg

DRUGS (3)
  1. AUGMENTIN '125' [Suspect]
     Indication: RESPIRATORY TRACT INFECTION
     Dosage: 625MG THREE TIMES PER DAY
     Route: 048
     Dates: start: 20080317, end: 20080320
  2. ZALDIAR [Suspect]
     Indication: BACK PAIN
     Route: 048
     Dates: start: 20071022, end: 20080319
  3. METOPROLOL TARTRATE [Concomitant]
     Dosage: 50MG PER DAY
     Route: 048
     Dates: start: 20060101, end: 20080319

REACTIONS (1)
  - DELIRIUM [None]
